FAERS Safety Report 4727629-5 (Version None)
Quarter: 2005Q3

REPORT INFORMATION
  Report Type: 
  Country: None (occurrence: None)
  Receive Date: 20050727
  Receipt Date: 20050727
  Transmission Date: 20060218
  Serious: Yes (Hospitalization)
  Sender: FDA-Public Use
  Company Number: None

PATIENT
  Age: 74 Year
  Sex: Male

DRUGS (15)
  1. FENTANYL [Suspect]
     Indication: CANCER PAIN
     Dosage: 75 MCG/HR TOP Q72H
     Route: 061
     Dates: start: 20050412, end: 20050607
  2. OXYCODONE [Suspect]
     Indication: CANCER PAIN
     Dosage: 5-10 MG PO Q4H PM
     Route: 048
     Dates: start: 20050425, end: 20050604
  3. VANCOMYCIN [Concomitant]
  4. FENTANYL [Concomitant]
  5. TYLENOL (CAPLET) [Concomitant]
  6. LASIX [Concomitant]
  7. MAGIC MOUTH WASH [Concomitant]
  8. CARAFATE [Concomitant]
  9. OMEPRAZOLE [Concomitant]
  10. ALBUTEROL [Concomitant]
  11. ALENDRONATE [Concomitant]
  12. AMIODARONE [Concomitant]
  13. ASPIRIN [Concomitant]
  14. GUAIFENESIN [Concomitant]
  15. TRAZODONE HCL [Concomitant]

REACTIONS (3)
  - DEPRESSED LEVEL OF CONSCIOUSNESS [None]
  - HYPOTENSION [None]
  - MENTAL STATUS CHANGES [None]
